FAERS Safety Report 16769336 (Version 11)
Quarter: 2020Q3

REPORT INFORMATION
  Report Type: Report from Study
  Country: US (occurrence: US)
  Receive Date: 20190903
  Receipt Date: 20200730
  Transmission Date: 20201102
  Serious: Yes (Hospitalization, Other)
  Sender: FDA-Public Use
  Company Number: US-ACTELION-A-NJ2018-175572

PATIENT
  Sex: Female
  Weight: 77.1 kg

DRUGS (12)
  1. UPTRAVI [Suspect]
     Active Substance: SELEXIPAG
     Dosage: 1200 MCG, BID
     Route: 048
  2. LETAIRIS [Concomitant]
     Active Substance: AMBRISENTAN
     Dosage: 10 MG
     Dates: start: 20151222
  3. UPTRAVI [Suspect]
     Active Substance: SELEXIPAG
     Dosage: 1000 MCG, BID
     Route: 048
     Dates: start: 20190515
  4. OXYGEN. [Concomitant]
     Active Substance: OXYGEN
     Dosage: 10 LITERS
  5. UPTRAVI [Suspect]
     Active Substance: SELEXIPAG
     Dosage: 1200 MCG, BID
     Route: 048
     Dates: start: 20180717
  6. UPTRAVI [Suspect]
     Active Substance: SELEXIPAG
     Dosage: 1600 MCG, BID
     Route: 048
  7. ADEMPAS [Concomitant]
     Active Substance: RIOCIGUAT
     Dosage: 1 MG
  8. OXYGEN. [Concomitant]
     Active Substance: OXYGEN
     Dosage: 5?6 LITERS
  9. UPTRAVI [Suspect]
     Active Substance: SELEXIPAG
     Indication: PULMONARY ARTERIAL HYPERTENSION
     Dosage: 800 MCG, BID
     Route: 048
  10. UPTRAVI [Suspect]
     Active Substance: SELEXIPAG
     Dosage: 1600 MCG, BID
     Route: 048
  11. ADEMPAS [Concomitant]
     Active Substance: RIOCIGUAT
     Dosage: 2.5 MG, TID
     Dates: start: 20180119
  12. UPTRAVI [Suspect]
     Active Substance: SELEXIPAG
     Dosage: 600 MCG, BID
     Route: 048

REACTIONS (27)
  - Medication error [Unknown]
  - Oxygen saturation decreased [Unknown]
  - Eye disorder [Unknown]
  - Hyperhidrosis [Unknown]
  - Chest pain [Unknown]
  - Upper limb fracture [Unknown]
  - Headache [Recovered/Resolved]
  - Dyspepsia [Recovered/Resolved]
  - Product dose omission issue [Unknown]
  - Pulmonary oedema [Recovering/Resolving]
  - Fall [Unknown]
  - Unevaluable event [Unknown]
  - Diarrhoea [Recovered/Resolved]
  - Nausea [Recovering/Resolving]
  - Dizziness [Unknown]
  - Pneumonia [Unknown]
  - Pleural effusion [Unknown]
  - Lung disorder [Unknown]
  - Rheumatoid arthritis [Unknown]
  - Vomiting [Unknown]
  - Chest discomfort [Unknown]
  - Oxygen saturation abnormal [Recovering/Resolving]
  - Dyspnoea [Unknown]
  - Arthralgia [Unknown]
  - Mobility decreased [Unknown]
  - Sluggishness [Unknown]
  - Fluid retention [Unknown]
